FAERS Safety Report 6222083-9 (Version None)
Quarter: 2009Q2

REPORT INFORMATION
  Report Type: 
  Country: None (occurrence: None)
  Receive Date: 20090608
  Receipt Date: 20090608
  Transmission Date: 20091009
  Serious: Yes (Hospitalization)
  Sender: FDA-Public Use
  Company Number: None

PATIENT
  Age: 74 Year
  Sex: Female
  Weight: 62.6 kg

DRUGS (10)
  1. PROMETHAZINE [Suspect]
     Indication: NAUSEA
     Dosage: 12.5 MG ONCE IV
     Route: 042
     Dates: start: 20090605, end: 20090605
  2. ENALAPRIL [Concomitant]
  3. ADVAIR HFA [Concomitant]
  4. REQUIP [Concomitant]
  5. VYTORIN [Concomitant]
  6. SINGULAIR [Concomitant]
  7. NEXIUM FLUOXETINE [Concomitant]
  8. SYNTHROID [Concomitant]
  9. FENTANYL [Concomitant]
  10. MIDAZOLAM HCL [Concomitant]

REACTIONS (5)
  - AGGRESSION [None]
  - DYSPNOEA [None]
  - MOVEMENT DISORDER [None]
  - POSTURING [None]
  - PROCEDURAL COMPLICATION [None]
